FAERS Safety Report 6664424-4 (Version None)
Quarter: 2010Q2

REPORT INFORMATION
  Report Type: 
  Country: None (occurrence: None)
  Receive Date: 20100401
  Receipt Date: 20100329
  Transmission Date: 20101027
  Serious: Yes (Death, Other)
  Sender: FDA-Public Use
  Company Number: PHEH2010US02709

PATIENT
  Sex: Female
  Weight: 71.8 kg

DRUGS (15)
  1. EXJADE [Suspect]
     Indication: IRON OVERLOAD
     Dosage: 1500 MG QD
     Route: 048
     Dates: start: 20090211, end: 20091204
  2. WARFARIN SODIUM [Concomitant]
     Indication: ATRIAL FIBRILLATION
     Dosage: 3MG, UNK
     Route: 048
  3. PEPCID [Concomitant]
     Indication: ANTACID THERAPY
     Dosage: 20MG, UNK
     Route: 048
  4. CITALOPRAM HYDROBROMIDE [Concomitant]
     Indication: DEPRESSION
     Dosage: 10MG, UNK
     Route: 048
  5. ALLOPURINOL [Concomitant]
     Indication: GOUT
     Dosage: 300MG, UNK
     Route: 048
  6. FOLIC ACID [Concomitant]
     Dosage: 1MG, UNK
     Route: 048
  7. LASIX [Concomitant]
     Indication: HYPERTENSION
     Dosage: 40MG, UNK
     Route: 048
  8. VYTORIN [Concomitant]
     Indication: HYPERLIPIDAEMIA
     Dosage: 10MG/40MG, UNK
     Route: 048
  9. POTASSIUM CHLORIDE [Concomitant]
     Dosage: 20MEQ, UNK
     Route: 048
  10. RYTHMOL [Concomitant]
     Indication: ATRIAL FIBRILLATION
     Dosage: 325 MG, TID
  11. COMPAZINE [Concomitant]
     Indication: NAUSEA
     Dosage: 10MG, PRN
     Route: 048
  12. DIGOXIN [Concomitant]
     Indication: ATRIAL FIBRILLATION
     Dosage: 0.125MG, UNK
     Route: 048
  13. DIGOXIN [Concomitant]
     Indication: HYPERTENSION
  14. ARICEPT [Concomitant]
     Indication: DEMENTIA
  15. TYLENOL-500 [Concomitant]
     Dosage: 325MG, PRN
     Route: 048

REACTIONS (17)
  - ANAEMIA [None]
  - ASTHENIA [None]
  - ATELECTASIS [None]
  - BRAIN MIDLINE SHIFT [None]
  - BRAIN OEDEMA [None]
  - CEREBRAL VENTRICLE DILATATION [None]
  - COAGULOPATHY [None]
  - DIZZINESS POSTURAL [None]
  - DYSPNOEA [None]
  - FATIGUE [None]
  - HAEMOGLOBIN DECREASED [None]
  - HEMIPARESIS [None]
  - INTERNATIONAL NORMALISED RATIO INCREASED [None]
  - NAUSEA [None]
  - NEUROLOGICAL DECOMPENSATION [None]
  - PULMONARY HILAR ENLARGEMENT [None]
  - SUBDURAL HAEMATOMA [None]
